FAERS Safety Report 6081714-7 (Version None)
Quarter: 2009Q1

REPORT INFORMATION
  Report Type: 
  Country: None (occurrence: None)
  Receive Date: 20090126
  Receipt Date: 20081120
  Transmission Date: 20090719
  Serious: Yes (Hospitalization)
  Sender: FDA-Public Use
  Company Number: WAES 0811USA03545

PATIENT
  Sex: 0

DRUGS (1)
  1. INVANZ [Suspect]
     Indication: PROPHYLAXIS
     Dosage: IV
     Route: 042

REACTIONS (2)
  - CONVULSION [None]
  - MENTAL STATUS CHANGES [None]
